FAERS Safety Report 5884159-5 (Version None)
Quarter: 2008Q3

REPORT INFORMATION
  Report Type: 
  Country: None (occurrence: None)
  Receive Date: 20080911
  Receipt Date: 20080905
  Transmission Date: 20090109
  Serious: Yes (Hospitalization)
  Sender: FDA-Public Use
  Company Number: 2008AL009930

PATIENT
  Sex: Male

DRUGS (1)
  1. DIGOXIN [Suspect]
     Indication: HEART RATE IRREGULAR
     Dosage: DAILY,  PO
     Route: 048
     Dates: start: 20020101, end: 20061101

REACTIONS (3)
  - CARDIAC DISORDER [None]
  - HEART RATE ABNORMAL [None]
  - PLASMA VISCOSITY DECREASED [None]
